FAERS Safety Report 26203178 (Version 1)
Quarter: 2025Q4

REPORT INFORMATION
  Report Type: Report from Study
  Country: CA (occurrence: CA)
  Receive Date: 20251226
  Receipt Date: 20251226
  Transmission Date: 20260118
  Serious: Yes (Other)
  Sender: ABBVIE
  Company Number: CA-ABBVIE-6582878

PATIENT
  Sex: Male

DRUGS (1)
  1. SKYRIZI [Suspect]
     Active Substance: RISANKIZUMAB-RZAA
     Indication: Psoriasis
     Dosage: LAST DOSE DATE: 02 OCT 2025?DOSE FORM: SOLUTION FOR INJECTION IN PRE-FILLED PEN
     Route: 058

REACTIONS (1)
  - Aortic aneurysm [Unknown]
